FAERS Safety Report 17929625 (Version 1)
Quarter: 2020Q2

REPORT INFORMATION
  Report Type: Spontaneous
  Country: US (occurrence: US)
  Receive Date: 20200623
  Receipt Date: 20200623
  Transmission Date: 20200714
  Serious: No
  Sender: FDA-Public Use
  Company Number: US-ALLERGAN-2016135US

PATIENT
  Sex: Female

DRUGS (1)
  1. DEOXYCHOLIC ACID UNK [Suspect]
     Active Substance: DEOXYCHOLIC ACID
     Indication: PRODUCT USED FOR UNKNOWN INDICATION
     Dosage: UNK, SINGLE
     Route: 058

REACTIONS (5)
  - Hypotonia [Not Recovered/Not Resolved]
  - Therapeutic product effect decreased [Unknown]
  - Injection site swelling [Recovered/Resolved]
  - Hypersensitivity [Not Recovered/Not Resolved]
  - Injection site nodule [Not Recovered/Not Resolved]
